FAERS Safety Report 14233753 (Version 1)
Quarter: 2017Q4

REPORT INFORMATION
  Report Type: Spontaneous
  Country: US (occurrence: US)
  Receive Date: 20171129
  Receipt Date: 20171129
  Transmission Date: 20180321
  Serious: No
  Sender: FDA-Public Use
  Company Number: US-009507513-1711USA005545

PATIENT
  Age: 71 Year
  Sex: Female

DRUGS (2)
  1. UBIDECARENONE [Concomitant]
     Active Substance: UBIDECARENONE
  2. ZOCOR [Suspect]
     Active Substance: SIMVASTATIN
     Dosage: UNK
     Route: 048
     Dates: start: 2013

REACTIONS (2)
  - Arthralgia [Recovered/Resolved]
  - Adverse event [Unknown]

NARRATIVE: CASE EVENT DATE: 2013
